FAERS Safety Report 13423186 (Version 1)
Quarter: 2017Q2

REPORT INFORMATION
  Report Type: Spontaneous
  Country: GB (occurrence: GB)
  Receive Date: 20170410
  Receipt Date: 20170410
  Transmission Date: 20170830
  Serious: Yes (Other)
  Sender: FDA-Public Use
  Company Number: GB-TEVA-755341ACC

PATIENT
  Sex: Female

DRUGS (4)
  1. PREDNISOLONE. [Suspect]
     Active Substance: PREDNISOLONE
     Route: 065
  2. CICLOSPORIN (DEXIMUNE) [Suspect]
     Active Substance: CYCLOSPORINE
     Route: 065
  3. CICLOSPORIN (DEXIMUNE) [Suspect]
     Active Substance: CYCLOSPORINE
     Route: 065
  4. MYFENAX [Suspect]
     Active Substance: MYCOPHENOLATE MOFETIL
     Route: 065

REACTIONS (1)
  - Renal failure [Unknown]
